FAERS Safety Report 7805513-8 (Version None)
Quarter: 2011Q4

REPORT INFORMATION
  Report Type: 
  Country: None (occurrence: None)
  Receive Date: 20111010
  Receipt Date: 20111003
  Transmission Date: 20120403
  Serious: Yes (Other)
  Sender: FDA-Public Use
  Company Number: PHHY2011JP81768

PATIENT
  Age: 48 Year
  Sex: Female

DRUGS (7)
  1. DECADRON [Concomitant]
     Dosage: 0.5 MG, DAILY
     Route: 048
     Dates: start: 20110906, end: 20110912
  2. FAMOTIDINE [Concomitant]
     Dosage: 40 MG, DAILY
     Dates: start: 20110913
  3. METOPIRONE [Suspect]
     Dosage: 3000 MG,DAILY
     Route: 048
     Dates: start: 20110908, end: 20110912
  4. METOPIRONE [Suspect]
     Dosage: 1500 MG, DAILY
     Route: 048
     Dates: start: 20110913
  5. LANSOPRAZOLE [Suspect]
     Dosage: 30 MG, DAILY
     Route: 048
     Dates: start: 20110906, end: 20110912
  6. METOPIRONE [Suspect]
     Indication: CUSHING'S SYNDROME
     Dosage: 1500 MG, DAILY
     Route: 048
     Dates: start: 20110903, end: 20110903
  7. METOPIRONE [Suspect]
     Dosage: 750 TO 1500 MG, DAILY
     Route: 048
     Dates: start: 20110906, end: 20110907

REACTIONS (4)
  - GAMMA-GLUTAMYLTRANSFERASE INCREASED [None]
  - ASPARTATE AMINOTRANSFERASE INCREASED [None]
  - LIVER FUNCTION TEST ABNORMAL [None]
  - ALANINE AMINOTRANSFERASE INCREASED [None]
